FAERS Safety Report 23504577 (Version 2)
Quarter: 2024Q1

REPORT INFORMATION
  Report Type: Other
  Country: JP (occurrence: JP)
  Receive Date: 20240209
  Receipt Date: 20240221
  Transmission Date: 20240410
  Serious: Yes (Life-Threatening, Other)
  Sender: FDA-Public Use
  Company Number: JP-ALVOGEN-2024092989

PATIENT
  Age: 36 Year
  Sex: Female

DRUGS (6)
  1. DAPSONE [Suspect]
     Active Substance: DAPSONE
     Indication: Borderline leprosy
     Dosage: AT 100 MG DAILY?FIRST LINE REGIMEN
  2. CLOFAZIMINE [Suspect]
     Active Substance: CLOFAZIMINE
     Indication: Borderline leprosy
     Dosage: AT 300 MG ONCE A MONTH AND 50MG DAILY?FIRST LINE REGIMEN
  3. CLOFAZIMINE [Suspect]
     Active Substance: CLOFAZIMINE
     Indication: Borderline leprosy
     Dosage: SECOND LINE REGIMEN
  4. RIFAMPIN [Suspect]
     Active Substance: RIFAMPIN
     Indication: Borderline leprosy
     Dosage: AT 600 MG ONCE A MONTH?FIRST LINE REGIMEN
  5. RIFAMPIN [Suspect]
     Active Substance: RIFAMPIN
     Indication: Borderline leprosy
     Dosage: SECOND LINE REGIMEN
  6. OFLOXACIN [Suspect]
     Active Substance: OFLOXACIN
     Indication: Borderline leprosy
     Dosage: AT 400 MG, DAILY?SECOND LINE REGIMEN

REACTIONS (6)
  - Methaemoglobinaemia [Recovered/Resolved]
  - Type 1 lepra reaction [Recovered/Resolved]
  - Neutropenia [Recovered/Resolved]
  - Anaemia [Recovered/Resolved]
  - Headache [Recovered/Resolved]
  - Nausea [Recovered/Resolved]
